FAERS Safety Report 24665455 (Version 1)
Quarter: 2024Q4

REPORT INFORMATION
  Report Type: Spontaneous
  Country: US (occurrence: US)
  Receive Date: 20241126
  Receipt Date: 20241126
  Transmission Date: 20250115
  Serious: Yes (Other)
  Sender: FRESENIUS KABI
  Company Number: US-FreseniusKabi-FK202417325

PATIENT
  Age: 63 Year
  Sex: Female
  Weight: 45 kg

DRUGS (15)
  1. TYENNE [Suspect]
     Active Substance: TOCILIZUMAB-AAZG
     Indication: Giant cell arteritis
     Dosage: FOA: INJECTION?ROUTE: SUBCUTANEOUS?ONGOING
     Dates: start: 20240911
  2. TYENNE [Suspect]
     Active Substance: TOCILIZUMAB-AAZG
     Indication: Polymyalgia rheumatica
  3. PREDNISONE [Suspect]
     Active Substance: PREDNISONE
     Indication: Giant cell arteritis
     Dosage: ROUTE: ORAL
     Dates: start: 20240807, end: 20240902
  4. PREDNISONE [Suspect]
     Active Substance: PREDNISONE
     Indication: Polymyalgia rheumatica
     Dosage: ROUTE: ORAL
     Dates: start: 20240903, end: 20240918
  5. PREDNISONE [Suspect]
     Active Substance: PREDNISONE
     Dosage: ROUTE: ORAL
     Dates: start: 20240919, end: 20241003
  6. PREDNISONE [Suspect]
     Active Substance: PREDNISONE
     Dosage: ROUTE: ORAL
     Dates: start: 20241004, end: 20241017
  7. PREDNISONE [Suspect]
     Active Substance: PREDNISONE
     Dosage: ROUTE: ORAL
     Dates: start: 20241018, end: 20241101
  8. PREDNISONE [Suspect]
     Active Substance: PREDNISONE
     Dosage: ROUTE: ORAL
     Dates: start: 20241102, end: 20241114
  9. PREDNISONE [Suspect]
     Active Substance: PREDNISONE
     Dosage: ROUTE: ORAL, ONGOING AT THE TIME OF THIS REPORT UNTIL THEIR NEXT RHEUM VISIT
     Dates: start: 20241115
  10. CLINDAMYCIN [Suspect]
     Active Substance: CLINDAMYCIN
     Indication: Prophylaxis
     Route: 048
     Dates: start: 20240813, end: 20240818
  11. Cosar [Concomitant]
     Indication: Hypertension
  12. MAGNESIUM [Concomitant]
     Active Substance: MAGNESIUM
     Indication: Product used for unknown indication
     Route: 048
  13. CALCIUM CITRATE [Concomitant]
     Active Substance: CALCIUM CITRATE
     Indication: Product used for unknown indication
     Route: 048
  14. LUTEIN [Concomitant]
     Active Substance: LUTEIN
     Indication: Product used for unknown indication
     Dosage: FOA-EYE DROP
  15. ZOLMITRIPTAN [Concomitant]
     Active Substance: ZOLMITRIPTAN
     Indication: Migraine

REACTIONS (10)
  - Dizziness [Not Recovered/Not Resolved]
  - Intracranial aneurysm [Not Recovered/Not Resolved]
  - Vomiting [Recovered/Resolved]
  - Deafness [Not Recovered/Not Resolved]
  - Vestibular disorder [Not Recovered/Not Resolved]
  - Abdominal distension [Not Recovered/Not Resolved]
  - Cushingoid [Not Recovered/Not Resolved]
  - Swelling [Not Recovered/Not Resolved]
  - Mouth swelling [Not Recovered/Not Resolved]
  - Off label use [Unknown]

NARRATIVE: CASE EVENT DATE: 20241019
